FAERS Safety Report 7485274-5 (Version None)
Quarter: 2011Q2

REPORT INFORMATION
  Report Type: 
  Country: None (occurrence: None)
  Receive Date: 20110517
  Receipt Date: 20100503
  Transmission Date: 20111010
  Serious: No
  Sender: FDA-Public Use
  Company Number: US-NOVEN-ALL1-2010-02596

PATIENT

DRUGS (3)
  1. GUANFACINE HYDROCHLORIDE [Concomitant]
     Dosage: UNK MG, 1X/DAY:QD ONE HALF OF A 1 MG TABLET DAILY
     Route: 048
     Dates: start: 20090101
  2. DAYTRANA [Suspect]
     Dosage: 20 MG, WEEKDAYS
     Route: 062
     Dates: start: 20090101
  3. DAYTRANA [Suspect]
     Dosage: UNK, 1X/DAY:QD (ONE HALF OF 20 MG. PATCH)
     Route: 062
     Dates: start: 20090101

REACTIONS (5)
  - MOOD SWINGS [None]
  - WEIGHT DECREASED [None]
  - LIP DRY [None]
  - WRONG TECHNIQUE IN DRUG USAGE PROCESS [None]
  - SLUGGISHNESS [None]
